FAERS Safety Report 12704831 (Version 1)
Quarter: 2016Q3

REPORT INFORMATION
  Report Type: Report from Study
  Country: US (occurrence: US)
  Receive Date: 20160831
  Receipt Date: 20160831
  Transmission Date: 20161109
  Serious: Yes (Hospitalization, Other)
  Sender: FDA-Public Use
  Company Number: US-MALLINCKRODT-T201603880

PATIENT
  Age: 62 Year
  Sex: Female

DRUGS (1)
  1. REPOSITORY CORTICOTROPIN INJECTION [Suspect]
     Active Substance: CORTICOTROPIN
     Indication: PRODUCT USED FOR UNKNOWN INDICATION
     Dosage: 80 UNITS/FREQUENCY NOT PROVIDED
     Route: 065
     Dates: start: 1979

REACTIONS (7)
  - Stress [Not Recovered/Not Resolved]
  - Visual impairment [Not Recovered/Not Resolved]
  - Therapy cessation [Not Recovered/Not Resolved]
  - Gastric ulcer haemorrhage [Unknown]
  - Spinal fracture [Unknown]
  - Fall [Unknown]
  - Haematemesis [Unknown]

NARRATIVE: CASE EVENT DATE: 2016
